FAERS Safety Report 6086320-6 (Version None)
Quarter: 2009Q1

REPORT INFORMATION
  Report Type: 
  Country: None (occurrence: None)
  Receive Date: 20090220
  Receipt Date: 20080519
  Transmission Date: 20090719
  Serious: No
  Sender: FDA-Public Use
  Company Number: US-BAYER-200823667NA

PATIENT
  Sex: Female

DRUGS (1)
  1. BETAPACE AF [Suspect]
     Indication: ATRIAL FIBRILLATION
     Route: 048

REACTIONS (1)
  - ADVERSE EVENT [None]
